FAERS Safety Report 17538028 (Version 2)
Quarter: 2020Q1

REPORT INFORMATION
  Report Type: Spontaneous
  Country: FR (occurrence: FR)
  Receive Date: 20200313
  Receipt Date: 20200323
  Transmission Date: 20200409
  Serious: Yes (Other)
  Sender: FDA-Public Use
  Company Number: FR-PFIZER INC-2020107790

PATIENT
  Age: 82 Year
  Sex: Male
  Weight: 83 kg

DRUGS (8)
  1. METFORMINE [METFORMIN] [Concomitant]
     Active Substance: METFORMIN HYDROCHLORIDE
     Dosage: 850X1
  2. PREVISCAN [FLUINDIONE] [Concomitant]
     Active Substance: FLUINDIONE
  3. DAFALGAN [Concomitant]
     Active Substance: ACETAMINOPHEN
     Dosage: UNK
  4. VYNDAQEL [Suspect]
     Active Substance: TAFAMIDIS MEGLUMINE
     Dosage: 20 MG, DAILY
     Dates: end: 20200303
  5. VYNDAQEL [Suspect]
     Active Substance: TAFAMIDIS MEGLUMINE
     Dosage: UNK
     Dates: start: 20200310
  6. AMIODARONE [Concomitant]
     Active Substance: AMIODARONE
     Dosage: 1/2
  7. GALVUS [Concomitant]
     Active Substance: VILDAGLIPTIN
     Dosage: UNK
  8. FUROSEMIDE. [Concomitant]
     Active Substance: FUROSEMIDE
     Dosage: 40X3

REACTIONS (1)
  - Diabetic metabolic decompensation [Unknown]
